FAERS Safety Report 20046923 (Version 1)
Quarter: 2021Q4

REPORT INFORMATION
  Report Type: Spontaneous
  Country: FR (occurrence: FR)
  Receive Date: 20211109
  Receipt Date: 20211109
  Transmission Date: 20220303
  Serious: Yes (Other)
  Sender: FDA-Public Use
  Company Number: None

PATIENT

DRUGS (6)
  1. FUROSEMIDE [Suspect]
     Active Substance: FUROSEMIDE
     Indication: Hypertension
     Dosage: 20 MG, TID
     Route: 042
     Dates: start: 20200312, end: 20200318
  2. CEFOTAXIME SODIUM [Suspect]
     Active Substance: CEFOTAXIME SODIUM
     Indication: Pneumonia
     Dosage: 1 DF, QD
     Route: 042
     Dates: start: 20200309, end: 20200316
  3. SUCRALFATE [Suspect]
     Active Substance: SUCRALFATE
     Indication: Prophylaxis
     Dosage: 1 DF, Q8H
     Route: 048
     Dates: start: 20200312, end: 20200318
  4. LOPINAVIR\RITONAVIR [Suspect]
     Active Substance: LOPINAVIR\RITONAVIR
     Indication: Coronavirus infection
     Dosage: 800 MG, QD
     Route: 048
     Dates: start: 20200310, end: 20200316
  5. PHOCYTAN [Suspect]
     Active Substance: .ALPHA.-GLUCOSE-1-PHOSPHATE
     Indication: Blood phosphorus decreased
     Dosage: UNK
     Route: 042
     Dates: start: 20200310, end: 20200313
  6. KARDEGIC [Concomitant]
     Active Substance: ASPIRIN DL-LYSINE
     Indication: Product used for unknown indication
     Dosage: UNK
     Route: 065

REACTIONS (1)
  - Cholestasis [Recovered/Resolved]

NARRATIVE: CASE EVENT DATE: 20200316
